FAERS Safety Report 25989316 (Version 1)
Quarter: 2025Q4

REPORT INFORMATION
  Report Type: Spontaneous
  Country: KR (occurrence: KR)
  Receive Date: 20251103
  Receipt Date: 20251103
  Transmission Date: 20260117
  Serious: Yes (Hospitalization, Other)
  Sender: ALEXION PHARMACEUTICALS
  Company Number: KR-ASTRAZENECA-202510ASI025665KR

PATIENT
  Age: 81 Year
  Sex: Male
  Weight: 56 kg

DRUGS (4)
  1. LYNPARZA [Suspect]
     Active Substance: OLAPARIB
     Indication: Hormone-refractory prostate cancer
     Dosage: UNK
     Route: 065
  2. ABIRATERONE ACETATE [Suspect]
     Active Substance: ABIRATERONE ACETATE
     Indication: Hormone-refractory prostate cancer
     Dosage: UNK
     Route: 065
  3. PREDNISOLONE [Suspect]
     Active Substance: PREDNISOLONE
     Indication: Hormone-refractory prostate cancer
     Dosage: UNK
     Route: 065
  4. TANTUM [Concomitant]
     Active Substance: BENZYDAMINE HYDROCHLORIDE
     Dosage: UNK
     Route: 065

REACTIONS (12)
  - Constipation [Unknown]
  - Fatigue [Recovering/Resolving]
  - Productive cough [Unknown]
  - Bronchiolitis [Recovered/Resolved]
  - Decreased appetite [Recovered/Resolved]
  - Contusion [Recovering/Resolving]
  - Hypersomnia [Recovering/Resolving]
  - Tongue ulceration [Unknown]
  - Treatment noncompliance [Unknown]
  - Eating disorder [Unknown]
  - Pneumonia [Unknown]
  - Back pain [Unknown]

NARRATIVE: CASE EVENT DATE: 20250101
